FAERS Safety Report 8258287-3 (Version None)
Quarter: 2012Q2

REPORT INFORMATION
  Report Type: 
  Country: None (occurrence: None)
  Receive Date: 20120404
  Receipt Date: 20120329
  Transmission Date: 20120825
  Serious: Yes (Hospitalization)
  Sender: FDA-Public Use
  Company Number: US-BAYER-2012-031783

PATIENT
  Age: 62 Year
  Sex: Male

DRUGS (4)
  1. NEXAVAR [Suspect]
     Indication: HEPATIC NEOPLASM MALIGNANT
     Dosage: UNK
     Dates: start: 20120303
  2. NEXAVAR [Suspect]
     Dosage: 200 MG, BID
     Dates: start: 20120328
  3. CADUET [Concomitant]
     Dosage: UNK
     Dates: end: 20120319
  4. NEXAVAR [Suspect]
     Dosage: 400 MG, BID
     Dates: start: 20120317, end: 20120319

REACTIONS (3)
  - CHEST PAIN [None]
  - CHEST DISCOMFORT [None]
  - CARDIAC FIBRILLATION [None]
